FAERS Safety Report 13832741 (Version 1)
Quarter: 2017Q3

REPORT INFORMATION
  Report Type: Spontaneous
  Country: US (occurrence: US)
  Receive Date: 20170803
  Receipt Date: 20170803
  Transmission Date: 20171127
  Serious: No
  Sender: FDA-Public Use
  Company Number: US-ROCHE-660815

PATIENT
  Age: 77 Year
  Sex: Female
  Weight: 58.6 kg

DRUGS (6)
  1. CITRACAL [Concomitant]
     Active Substance: CALCIUM CITRATE
     Indication: OSTEOPOROSIS
     Route: 065
  2. BONIVA [Suspect]
     Active Substance: IBANDRONATE SODIUM
     Indication: OSTEOPOROSIS
     Route: 048
     Dates: start: 19960919, end: 20100104
  3. FOSAMAX [Suspect]
     Active Substance: ALENDRONATE SODIUM
     Indication: OSTEOPOROSIS
     Route: 048
  4. VITAMIN C [Concomitant]
     Active Substance: ASCORBIC ACID
     Route: 065
  5. CALCIUM/VITAMIN D [Concomitant]
     Active Substance: CALCIUM\VITAMIN D
     Dosage: DRUG NAME: CALCIUM WITH VITAMIN D.
     Route: 065
  6. RED YEAST RICE [Concomitant]
     Active Substance: DIETARY SUPPLEMENT
     Route: 065

REACTIONS (4)
  - Swelling face [Not Recovered/Not Resolved]
  - Blepharitis [Not Recovered/Not Resolved]
  - Pain in extremity [Not Recovered/Not Resolved]
  - Cataract [Unknown]

NARRATIVE: CASE EVENT DATE: 200811
